FAERS Safety Report 11825694 (Version 3)
Quarter: 2016Q1

REPORT INFORMATION
  Report Type: Spontaneous
  Country: US (occurrence: US)
  Receive Date: 20151211
  Receipt Date: 20160308
  Transmission Date: 20160525
  Serious: No
  Sender: FDA-Public Use
  Company Number: US-JNJFOC-20150514551

PATIENT
  Age: 70 Year
  Sex: Female

DRUGS (14)
  1. NORVASC [Concomitant]
     Active Substance: AMLODIPINE BESYLATE
  2. IMBRUVICA [Suspect]
     Active Substance: IBRUTINIB
     Indication: WALDENSTROM^S MACROGLOBULINAEMIA
     Dosage: UNK
     Route: 048
     Dates: start: 201504
  3. LIPITOR [Concomitant]
     Active Substance: ATORVASTATIN CALCIUM
  4. SPIRONOLACTONE. [Concomitant]
     Active Substance: SPIRONOLACTONE
  5. VITAMIN D [Concomitant]
     Active Substance: CHOLECALCIFEROL
  6. CENTRUM NOS [Concomitant]
  7. IMBRUVICA [Suspect]
     Active Substance: IBRUTINIB
     Indication: WALDENSTROM^S MACROGLOBULINAEMIA
     Route: 048
     Dates: start: 20150403
  8. ASPIRIN. [Concomitant]
     Active Substance: ASPIRIN
  9. DYAZIDE [Concomitant]
     Active Substance: HYDROCHLOROTHIAZIDE\TRIAMTERENE
  10. TRAMADOL. [Concomitant]
     Active Substance: TRAMADOL
  11. TRIAMTERENE AND HYDROCHLOROTHIAZID [Concomitant]
     Active Substance: HYDROCHLOROTHIAZIDE\TRIAMTERENE
  12. SKELAXIN [Concomitant]
     Active Substance: METAXALONE
  13. CYMBALTA [Concomitant]
     Active Substance: DULOXETINE HYDROCHLORIDE
  14. LASIX [Concomitant]
     Active Substance: FUROSEMIDE

REACTIONS (16)
  - Paraesthesia [Unknown]
  - Burning sensation [Unknown]
  - Erythema [Unknown]
  - Neuralgia [Unknown]
  - Neuromyopathy [Unknown]
  - Arthralgia [Recovering/Resolving]
  - Rash macular [Unknown]
  - Insomnia [Recovering/Resolving]
  - Pain [Unknown]
  - Weight increased [Recovering/Resolving]
  - Sciatica [Unknown]
  - Peripheral swelling [Unknown]
  - Arthritis [Not Recovered/Not Resolved]
  - Contusion [Unknown]
  - Muscle spasms [Unknown]
  - Asthenia [Recovering/Resolving]

NARRATIVE: CASE EVENT DATE: 2015
